FAERS Safety Report 7760290-4 (Version None)
Quarter: 2011Q3

REPORT INFORMATION
  Report Type: 
  Country: None (occurrence: None)
  Receive Date: 20110919
  Receipt Date: 20110912
  Transmission Date: 20111222
  Serious: Yes (Other)
  Sender: FDA-Public Use
  Company Number: GB-PFIZER INC-2011211844

PATIENT
  Sex: Male

DRUGS (1)
  1. KETALAR [Suspect]
     Indication: POSTOPERATIVE ANALGESIA
     Dosage: UNK
     Dates: start: 20110908

REACTIONS (2)
  - OFF LABEL USE [None]
  - LOSS OF CONSCIOUSNESS [None]
